FAERS Safety Report 17187265 (Version 1)
Quarter: 2019Q4

REPORT INFORMATION
  Report Type: Report from Study
  Country: US (occurrence: US)
  Receive Date: 20191220
  Receipt Date: 20191220
  Transmission Date: 20200122
  Serious: Yes (Hospitalization)
  Sender: FDA-Public Use
  Company Number: US-ACTELION-A-NJ2019-193392

PATIENT
  Sex: Female
  Weight: 79.37 kg

DRUGS (4)
  1. REVATIO [Concomitant]
     Active Substance: SILDENAFIL CITRATE
  2. VELETRI [Suspect]
     Active Substance: EPOPROSTENOL
     Indication: PULMONARY HYPERTENSION
     Dosage: 14 NG/KG, PER MIN
     Route: 042
  3. WARFARIN [Concomitant]
     Active Substance: WARFARIN
  4. MELATONIN [Concomitant]
     Active Substance: MELATONIN

REACTIONS (4)
  - Flushing [Unknown]
  - Insomnia [Unknown]
  - Pneumonia [Unknown]
  - Dyspnoea exertional [Not Recovered/Not Resolved]
